FAERS Safety Report 19270137 (Version 1)
Quarter: 2021Q2

REPORT INFORMATION
  Report Type: Spontaneous
  Country: JP (occurrence: JP)
  Receive Date: 20210518
  Receipt Date: 20210518
  Transmission Date: 20210717
  Serious: Yes (Other)
  Sender: FDA-Public Use
  Company Number: JP-PFIZER INC-2021510346

PATIENT
  Age: 19 Year
  Sex: Female

DRUGS (1)
  1. DALACIN [Suspect]
     Active Substance: CLINDAMYCIN
     Dosage: UNK
     Route: 048

REACTIONS (3)
  - Chest discomfort [Unknown]
  - Oesophagitis [Unknown]
  - Dyspepsia [Unknown]
